FAERS Safety Report 6945996-9 (Version None)
Quarter: 2010Q3

REPORT INFORMATION
  Report Type: 
  Country: None (occurrence: None)
  Receive Date: 20100827
  Receipt Date: 20100111
  Transmission Date: 20110219
  Serious: No
  Sender: FDA-Public Use
  Company Number: A0838761A

PATIENT
  Sex: Male

DRUGS (3)
  1. ACYCLOVIR SODIUM [Suspect]
     Indication: HERPES VIRUS INFECTION
     Dosage: 1600MG AS REQUIRED
     Route: 048
     Dates: start: 19960101
  2. DIFLUCAN [Concomitant]
  3. DYTAN [Concomitant]

REACTIONS (1)
  - DRUG INEFFECTIVE [None]
